FAERS Safety Report 17806250 (Version 1)
Quarter: 2020Q2

REPORT INFORMATION
  Report Type: Spontaneous
  Country: PR (occurrence: PR)
  Receive Date: 20200518
  Receipt Date: 20200518
  Transmission Date: 20200714
  Serious: Yes (Hospitalization)
  Sender: FDA-Public Use
  Company Number: None

PATIENT
  Age: 67 Year
  Sex: Male
  Weight: 135 kg

DRUGS (2)
  1. PROCRIT [Suspect]
     Active Substance: ERYTHROPOIETIN
     Indication: ANAEMIA
     Dosage: EVERY 7 DAYS
     Route: 058
     Dates: start: 20200428
  2. PROCRIT [Concomitant]
     Active Substance: ERYTHROPOIETIN
     Dates: start: 20200428

REACTIONS (5)
  - Fluid retention [None]
  - Respiratory distress [None]
  - Rash [None]
  - Pruritus [None]
  - Dialysis [None]

NARRATIVE: CASE EVENT DATE: 20200504
